FAERS Safety Report 23306992 (Version 2)
Quarter: 2024Q1

REPORT INFORMATION
  Report Type: Spontaneous
  Country: US (occurrence: US)
  Receive Date: 20231218
  Receipt Date: 20240117
  Transmission Date: 20240409
  Serious: No
  Sender: FDA-Public Use
  Company Number: US-BRISTOL-MYERS SQUIBB COMPANY-2023-176316

PATIENT
  Age: 22 Year
  Sex: Female

DRUGS (4)
  1. ABATACEPT [Suspect]
     Active Substance: ABATACEPT
     Indication: Sickle cell disease
     Route: 042
     Dates: start: 20161213
  2. ABATACEPT [Suspect]
     Active Substance: ABATACEPT
     Indication: Haemolytic anaemia
     Route: 042
  3. PREDNISONE [Suspect]
     Active Substance: PREDNISONE
     Indication: Sickle cell disease
  4. PREDNISONE [Suspect]
     Active Substance: PREDNISONE

REACTIONS (2)
  - Parvovirus B19 infection [Unknown]
  - Off label use [Unknown]
